FAERS Safety Report 10540734 (Version 1)
Quarter: 2014Q4

REPORT INFORMATION
  Report Type: Report from Study
  Country: US (occurrence: US)
  Receive Date: 20141024
  Receipt Date: 20141024
  Transmission Date: 20150529
  Serious: No
  Sender: FDA-Public Use
  Company Number: US-ABBVIE-14P-163-1211778-00

PATIENT
  Age: 51 Year
  Sex: Female

DRUGS (2)
  1. KALETRA [Suspect]
     Active Substance: LOPINAVIR\RITONAVIR
     Indication: HIV INFECTION
     Dates: start: 2010
  2. UNKNOWN PAIN MEDICATIONS [Concomitant]
     Active Substance: UNSPECIFIED INGREDIENT
     Indication: PAIN

REACTIONS (2)
  - Peripheral swelling [Not Recovered/Not Resolved]
  - Joint swelling [Not Recovered/Not Resolved]

NARRATIVE: CASE EVENT DATE: 201403
